FAERS Safety Report 6211757-1 (Version None)
Quarter: 2009Q2

REPORT INFORMATION
  Report Type: 
  Country: None (occurrence: None)
  Receive Date: 20090528
  Receipt Date: 20090520
  Transmission Date: 20091009
  Serious: Yes (Hospitalization)
  Sender: FDA-Public Use
  Company Number: GXKR2009CN05442

PATIENT
  Age: 46 Year
  Sex: Male

DRUGS (1)
  1. TRIAMCINOLONE ACETONIDE (NGX)(TRIAMCINOLONE ACETONIDE)  4/0.1MG/ML [Suspect]
     Indication: MACULAR OEDEMA
     Dosage: INTRAVITREOUS
     Dates: start: 20070516

REACTIONS (4)
  - CULTURE POSITIVE [None]
  - ENDOPHTHALMITIS [None]
  - HAEMORRHAGE [None]
  - STAPHYLOCOCCAL INFECTION [None]
